FAERS Safety Report 10363141 (Version 1)
Quarter: 2014Q3

REPORT INFORMATION
  Report Type: Report from Study
  Country: US (occurrence: US)
  Receive Date: 20140805
  Receipt Date: 20140805
  Transmission Date: 20150326
  Serious: No
  Sender: FDA-Public Use
  Company Number: US-VERTEX PHARMACEUTICALS INC-2014-003272

PATIENT
  Sex: Female

DRUGS (1)
  1. IVACAFTOR [Suspect]
     Active Substance: IVACAFTOR
     Indication: CYSTIC FIBROSIS
     Dosage: 150 MG, BID
     Route: 048
     Dates: start: 20120206

REACTIONS (4)
  - Treatment noncompliance [Unknown]
  - Infective pulmonary exacerbation of cystic fibrosis [Unknown]
  - Pulmonary function test decreased [Unknown]
  - Weight decreased [Unknown]
